FAERS Safety Report 18411725 (Version 2)
Quarter: 2020Q4

REPORT INFORMATION
  Report Type: Spontaneous
  Country: AU (occurrence: AU)
  Receive Date: 20201021
  Receipt Date: 20201120
  Transmission Date: 20210114
  Serious: Yes (Death, Other)
  Sender: FDA-Public Use
  Company Number: AU-ALXN-A202015386

PATIENT
  Sex: Female

DRUGS (1)
  1. SOLIRIS [Suspect]
     Active Substance: ECULIZUMAB
     Indication: PAROXYSMAL NOCTURNAL HAEMOGLOBINURIA
     Dosage: 900 MG, Q2W
     Route: 042
     Dates: start: 2004, end: 2008

REACTIONS (4)
  - Acute myeloid leukaemia [Unknown]
  - Graft versus host disease [Fatal]
  - Myelodysplastic syndrome [Unknown]
  - Thrombocytosis [Recovered/Resolved]

NARRATIVE: CASE EVENT DATE: 2008
